FAERS Safety Report 20518734 (Version 1)
Quarter: 2022Q1

REPORT INFORMATION
  Report Type: Spontaneous
  Country: US (occurrence: None)
  Receive Date: 20220224
  Receipt Date: 20220224
  Transmission Date: 20220423
  Serious: Yes (Other)
  Sender: FDA-Public Use
  Company Number: None

PATIENT
  Age: 40 Year
  Sex: Female
  Weight: 121.5 kg

DRUGS (1)
  1. ISOVUE 370 [Suspect]
     Active Substance: IOPAMIDOL
     Indication: Computerised tomogram
     Dosage: FREQUENCY : AS NEEDED;?
     Route: 042

REACTIONS (4)
  - Sneezing [None]
  - Nasal pruritus [None]
  - Throat irritation [None]
  - Contrast media reaction [None]

NARRATIVE: CASE EVENT DATE: 20220223
